FAERS Safety Report 4990463-5 (Version None)
Quarter: 2006Q2

REPORT INFORMATION
  Report Type: 
  Country: None (occurrence: None)
  Receive Date: 20060427
  Receipt Date: 20060417
  Transmission Date: 20061013
  Serious: Yes (Hospitalization)
  Sender: FDA-Public Use
  Company Number: 2006-00812

PATIENT
  Sex: Male

DRUGS (1)
  1. VELCADE [Suspect]
     Indication: PROSTATE CANCER
     Dates: end: 20060403

REACTIONS (7)
  - ASPIRATION [None]
  - CHILLS [None]
  - FATIGUE [None]
  - ILEUS [None]
  - NAUSEA [None]
  - THROMBOCYTOPENIA [None]
  - VOMITING [None]
